FAERS Safety Report 5811911-4 (Version None)
Quarter: 2008Q3

REPORT INFORMATION
  Report Type: 
  Country: None (occurrence: None)
  Receive Date: 20080714
  Receipt Date: 20080627
  Transmission Date: 20090109
  Serious: Yes (Other)
  Sender: FDA-Public Use
  Company Number: 2008054751

PATIENT
  Age: 63 Year
  Sex: Male

DRUGS (1)
  1. FRAGMIN [Suspect]
     Indication: POSTOPERATIVE CARE

REACTIONS (1)
  - PLATELET COUNT INCREASED [None]
